FAERS Safety Report 7993653-2 (Version None)
Quarter: 2011Q4

REPORT INFORMATION
  Report Type: 
  Country: None (occurrence: None)
  Receive Date: 20111219
  Receipt Date: 20111209
  Transmission Date: 20120403
  Serious: Yes (Other)
  Sender: FDA-Public Use
  Company Number: US-ASTRAZENECA-2011SE72245

PATIENT
  Age: 53 Year
  Sex: Male

DRUGS (5)
  1. NEXIUM [Suspect]
     Route: 048
  2. ASPIRIN [Concomitant]
  3. SYMBICORT [Suspect]
     Route: 055
  4. TOPROL-XL [Suspect]
     Route: 048
  5. PLAVIX [Concomitant]

REACTIONS (3)
  - CHEST PAIN [None]
  - MYOCARDIAL INFARCTION [None]
  - DRUG INTOLERANCE [None]
